FAERS Safety Report 8870958 (Version 2)
Quarter: 2012Q4

REPORT INFORMATION
  Report Type: 
  Country: US (occurrence: None)
  Receive Date: 20121031
  Receipt Date: 20121109
  Transmission Date: 20130627
  Serious: Yes (Hospitalization)
  Sender: FDA-Public Use
  Company Number: None

PATIENT
  Sex: Female
  Weight: 68.04 kg

DRUGS (1)
  1. HYALURONIDASE [Suspect]

REACTIONS (4)
  - Nausea [None]
  - Eye pain [None]
  - Ocular hyperaemia [None]
  - Eye discharge [None]
